FAERS Safety Report 8553349-5 (Version None)
Quarter: 2012Q3

REPORT INFORMATION
  Report Type: 
  Country: None (occurrence: None)
  Receive Date: 20120731
  Receipt Date: 20120719
  Transmission Date: 20120928
  Serious: Yes (Other)
  Sender: FDA-Public Use
  Company Number: PL-CELGENEUS-129-21880-12072021

PATIENT
  Sex: Female

DRUGS (2)
  1. REVLIMID [Suspect]
     Indication: MYELOFIBROSIS
  2. REVLIMID [Suspect]
     Indication: MULTIPLE MYELOMA
     Dosage: 25 MILLIGRAM
     Route: 048

REACTIONS (4)
  - HEPATOMEGALY [None]
  - HEPATIC ENZYME INCREASED [None]
  - SPLENOMEGALY [None]
  - HAEMOGLOBIN DECREASED [None]
